FAERS Safety Report 20685610 (Version 1)
Quarter: 2022Q2

REPORT INFORMATION
  Report Type: Spontaneous
  Country: US (occurrence: None)
  Receive Date: 20220406
  Receipt Date: 20220406
  Transmission Date: 20220721
  Serious: Yes (Hospitalization)
  Sender: FDA-Public Use
  Company Number: None

PATIENT

DRUGS (2)
  1. HOMEOPATHICS [Suspect]
     Active Substance: HOMEOPATHICS
     Dosage: FREQUENCY : DAILY;?
     Route: 060
  2. DYSBIO PLUS [Concomitant]

REACTIONS (2)
  - Diarrhoea [None]
  - Weight decreased [None]

NARRATIVE: CASE EVENT DATE: 20220322
